FAERS Safety Report 18596118 (Version 1)
Quarter: 2020Q4

REPORT INFORMATION
  Report Type: Report from Study
  Country: None (occurrence: PE)
  Receive Date: 20201209
  Receipt Date: 20201209
  Transmission Date: 20210114
  Serious: Yes (Death, Hospitalization, Other)
  Sender: FDA-Public Use
  Company Number: PE-ABBVIE-20K-127-3685037-00

PATIENT
  Age: 86 Year
  Sex: Male
  Weight: 66 kg

DRUGS (1)
  1. IMBRUVICA [Suspect]
     Active Substance: IBRUTINIB
     Indication: MANTLE CELL LYMPHOMA
     Route: 048
     Dates: start: 20190102, end: 20201030

REACTIONS (4)
  - Death [Fatal]
  - Head injury [Fatal]
  - Lung neoplasm [Fatal]
  - General physical health deterioration [Fatal]

NARRATIVE: CASE EVENT DATE: 202011
